FAERS Safety Report 24210915 (Version 1)
Quarter: 2024Q3

REPORT INFORMATION
  Report Type: Spontaneous
  Country: US (occurrence: US)
  Receive Date: 20240814
  Receipt Date: 20240814
  Transmission Date: 20241016
  Serious: No
  Sender: BAYER
  Company Number: US-BAYER-2024A114563

PATIENT

DRUGS (1)
  1. GADAVIST [Suspect]
     Active Substance: GADOBUTROL
     Indication: Scan with contrast
     Dosage: UNK, ONCE

REACTIONS (5)
  - Urticaria [None]
  - Oropharyngeal pain [None]
  - Urticaria [None]
  - Erythema [None]
  - Urticaria [None]

NARRATIVE: CASE EVENT DATE: 20240306
